FAERS Safety Report 7630661-5 (Version None)
Quarter: 2011Q3

REPORT INFORMATION
  Report Type: 
  Country: None (occurrence: None)
  Receive Date: 20110722
  Receipt Date: 20110720
  Transmission Date: 20111222
  Serious: Yes (Death)
  Sender: FDA-Public Use
  Company Number: US-ASTRAZENECA-2008UW12310

PATIENT
  Age: 46 Year
  Sex: Male
  Weight: 127 kg

DRUGS (4)
  1. PROMETHAZINE [Concomitant]
     Dates: start: 20070130
  2. WELLBUTRIN [Concomitant]
     Dates: start: 20060301, end: 20071001
  3. SEROQUEL [Suspect]
     Indication: BIPOLAR DISORDER
     Route: 048
     Dates: start: 20050818, end: 20071018
  4. GABAPENTIN [Concomitant]
     Dates: start: 20060515

REACTIONS (7)
  - HYPERTENSIVE HEART DISEASE [None]
  - DIABETIC FOOT [None]
  - TOXICITY TO VARIOUS AGENTS [None]
  - MIGRAINE [None]
  - MUSCULOSKELETAL PAIN [None]
  - DIABETES MELLITUS INADEQUATE CONTROL [None]
  - TYPE 2 DIABETES MELLITUS [None]
